FAERS Safety Report 5586201-8 (Version None)
Quarter: 2008Q1

REPORT INFORMATION
  Report Type: 
  Country: None (occurrence: None)
  Receive Date: 20080107
  Receipt Date: 20071220
  Transmission Date: 20080703
  Serious: Yes (Other)
  Sender: FDA-Public Use
  Company Number: 2007CL001237

PATIENT
  Age: 52 Year
  Sex: Female
  Weight: 75.2971 kg

DRUGS (16)
  1. SYMLIN [Suspect]
     Indication: TYPE 1 DIABETES MELLITUS
     Dosage: 15 MCG; TID; SC
     Route: 058
     Dates: start: 20070915, end: 20071021
  2. SYMLIN [Suspect]
     Indication: TYPE 1 DIABETES MELLITUS
     Dosage: 15 MCG; TID; SC
     Route: 058
     Dates: start: 20071028
  3. NOVOLOG [Suspect]
     Indication: TYPE 1 DIABETES MELLITUS
  4. LISINOPRIL [Concomitant]
  5. MICARDIS [Concomitant]
  6. ZOCOR [Concomitant]
  7. COREG [Concomitant]
  8. ASPIRIN [Concomitant]
  9. ALLEGRA [Concomitant]
  10. DURAHIST PE [Concomitant]
  11. NASACORT AQ [Concomitant]
  12. POTASSIUM [Concomitant]
  13. VITAMIN B [Concomitant]
  14. CALCIUM [Concomitant]
  15. FOLATE [Concomitant]
  16. FISH OIL [Concomitant]

REACTIONS (2)
  - BLOOD GLUCOSE FLUCTUATION [None]
  - HYPOGLYCAEMIC UNCONSCIOUSNESS [None]
